FAERS Safety Report 18375138 (Version 1)
Quarter: 2020Q4

REPORT INFORMATION
  Report Type: Spontaneous
  Country: US (occurrence: US)
  Receive Date: 20201004
  Receipt Date: 20201004
  Transmission Date: 20210114
  Serious: Yes (Death)
  Sender: FDA-Public Use
  Company Number: None

PATIENT
  Age: 7 Decade
  Sex: Male

DRUGS (6)
  1. LOPINAVIR [Suspect]
     Active Substance: LOPINAVIR
     Indication: COVID-19
     Dates: start: 2020
  2. METHYLPREDNISOLONE. [Suspect]
     Active Substance: METHYLPREDNISOLONE
     Indication: COVID-19
     Route: 042
     Dates: start: 2020
  3. ARBIDOL [Suspect]
     Active Substance: UMIFENOVIR
     Indication: COVID-19
     Dates: start: 2020
  4. RECOMBINANT HUMAN INTERFERON BETA-2B [Suspect]
     Active Substance: INTERFERON BETA
     Indication: COVID-19
     Route: 042
     Dates: start: 2020
  5. RITONAVIR. [Suspect]
     Active Substance: RITONAVIR
     Indication: COVID-19
     Dates: start: 2020
  6. MOXIFLOXACIN. [Suspect]
     Active Substance: MOXIFLOXACIN
     Indication: COVID-19
     Route: 042
     Dates: start: 2020

REACTIONS (7)
  - Cardio-respiratory arrest [None]
  - Cerebral haemorrhage [None]
  - Multiple organ dysfunction syndrome [None]
  - Coma [None]
  - Off label use [None]
  - Respiratory failure [None]
  - Renal failure [None]
